FAERS Safety Report 7166019-5 (Version None)
Quarter: 2010Q4

REPORT INFORMATION
  Report Type: 
  Country: None (occurrence: None)
  Receive Date: 20101216
  Receipt Date: 20101207
  Transmission Date: 20110411
  Serious: No
  Sender: FDA-Public Use
  Company Number: US-BIOGENIDEC-2010BI043199

PATIENT
  Sex: Female

DRUGS (1)
  1. TYSABRI [Suspect]
     Indication: MULTIPLE SCLEROSIS
     Route: 042
     Dates: start: 20100622

REACTIONS (6)
  - AMNESIA [None]
  - COUGH [None]
  - FATIGUE [None]
  - MENTAL IMPAIRMENT [None]
  - NASOPHARYNGITIS [None]
  - SINUSITIS [None]
